FAERS Safety Report 4431860-6 (Version None)
Quarter: 2004Q3

REPORT INFORMATION
  Report Type: 
  Country: None (occurrence: None)
  Receive Date: 20040819
  Receipt Date: 20040809
  Transmission Date: 20050211
  Serious: Yes (Hospitalization)
  Sender: FDA-Public Use
  Company Number: K200401195

PATIENT
  Age: 72 Year

DRUGS (11)
  1. ALTACE [Suspect]
     Indication: CARDIOMYOPATHY
     Dosage: 2.5 MG, BID, ORAL
     Route: 048
     Dates: start: 20010101, end: 20030829
  2. ALTACE [Suspect]
     Indication: CARDIOMYOPATHY
     Dosage: 2.5 MG, BID, ORAL
     Route: 048
     Dates: start: 20030829
  3. ALDACTONE [Suspect]
     Indication: CARDIOMYOPATHY
     Dosage: QD, ORAL; SEE IMAGE
     Route: 048
     Dates: start: 20030701, end: 20030829
  4. ALDACTONE [Suspect]
     Indication: CARDIOMYOPATHY
     Dosage: QD, ORAL; SEE IMAGE
     Route: 048
     Dates: start: 20030829
  5. TOREM(TORASEMIDE) TABLET, 15 MG [Concomitant]
     Indication: CARDIOMYOPATHY
     Dosage: 15 MG, QD, ORAL
     Route: 048
     Dates: start: 20010401
  6. DIGITOXIN TAB [Concomitant]
  7. CARVEDILOL [Concomitant]
  8. FALITHROM ^FAHLBERG^ (PHENPROCOUMON) [Concomitant]
  9. ISOKET  RETARD (ISOSORBIDE DINITRATE) [Concomitant]
  10. SORTIS ^GOEDECKE^ (ATORVASTATIN) [Concomitant]
  11. CARBAMAZEPINE [Concomitant]

REACTIONS (13)
  - AORTIC VALVE INCOMPETENCE [None]
  - BLOOD POTASSIUM DECREASED [None]
  - BLOOD SODIUM DECREASED [None]
  - CARDIAC PACEMAKER MALFUNCTION [None]
  - DEHYDRATION [None]
  - DIZZINESS [None]
  - HAEMATOCRIT DECREASED [None]
  - HAEMOGLOBIN DECREASED [None]
  - MITRAL VALVE INCOMPETENCE [None]
  - PULMONARY HYPERTENSION [None]
  - PULMONARY VALVE INCOMPETENCE [None]
  - SYNCOPE [None]
  - TRICUSPID VALVE INCOMPETENCE [None]
